FAERS Safety Report 4625332-3 (Version None)
Quarter: 2005Q2

REPORT INFORMATION
  Report Type: 
  Country: None (occurrence: None)
  Receive Date: 20050401
  Receipt Date: 20050325
  Transmission Date: 20051028
  Serious: Yes (Death)
  Sender: FDA-Public Use
  Company Number: SEPFP-E-20050001

PATIENT
  Age: 55 Year
  Sex: Female

DRUGS (3)
  1. NAVELBINE [Suspect]
     Indication: LUNG CANCER METASTATIC
     Route: 042
     Dates: start: 20050125, end: 20050125
  2. GEMZAR [Suspect]
  3. CARBOPLATIN [Concomitant]

REACTIONS (2)
  - ACUTE MYOCARDIAL INFARCTION [None]
  - CARDIAC FAILURE [None]
